FAERS Safety Report 13943454 (Version 1)
Quarter: 2017Q3

REPORT INFORMATION
  Report Type: Spontaneous
  Country: GB (occurrence: GB)
  Receive Date: 20170907
  Receipt Date: 20170907
  Transmission Date: 20171128
  Serious: Yes (Other)
  Sender: FDA-Public Use
  Company Number: GB-TEVA-802254ACC

PATIENT
  Age: 70 Year

DRUGS (10)
  1. ASPIRIN. [Concomitant]
     Active Substance: ASPIRIN
  2. HEPARIN [Concomitant]
     Active Substance: HEPARIN SODIUM
     Dosage: 10000 IU (INTERNATIONAL UNIT) DAILY;
     Route: 058
  3. AMIODARONE [Concomitant]
     Active Substance: AMIODARONE
  4. SEVELAMER [Concomitant]
     Active Substance: SEVELAMER
  5. CLOPIDOGREL [Concomitant]
     Active Substance: CLOPIDOGREL BISULFATE
  6. PYRAZINAMIDE. [Concomitant]
     Active Substance: PYRAZINAMIDE
  7. RIFAMPICIN [Concomitant]
     Active Substance: RIFAMPIN
  8. MOXIFLOXACIN. [Suspect]
     Active Substance: MOXIFLOXACIN
  9. ISONIAZID. [Concomitant]
     Active Substance: ISONIAZID
  10. PYRIDOXINE [Concomitant]
     Active Substance: PYRIDOXINE

REACTIONS (2)
  - International normalised ratio increased [Unknown]
  - Activated partial thromboplastin time prolonged [Unknown]

NARRATIVE: CASE EVENT DATE: 20170815
